FAERS Safety Report 4867780-2 (Version None)
Quarter: 2005Q4

REPORT INFORMATION
  Report Type: 
  Country: None (occurrence: None)
  Receive Date: 20051227
  Receipt Date: 20051227
  Transmission Date: 20060501
  Serious: Yes (Disabling)
  Sender: FDA-Public Use
  Company Number: None

PATIENT
  Sex: Female
  Weight: 74.8435 kg

DRUGS (2)
  1. ORTHO EVRA [Suspect]
     Indication: MENSTRUATION IRREGULAR
     Dosage: 1 PATCH  PER WEEK
     Dates: start: 20030201, end: 20040401
  2. ORTHO EVRA [Suspect]
     Indication: PROGESTERONE DECREASED
     Dosage: 1 PATCH  PER WEEK
     Dates: start: 20030201, end: 20040401

REACTIONS (11)
  - ABDOMINAL DISTENSION [None]
  - ABDOMINAL PAIN [None]
  - BLOOD ALBUMIN DECREASED [None]
  - CONSTIPATION [None]
  - DIARRHOEA [None]
  - FATIGUE [None]
  - GASTROINTESTINAL PAIN [None]
  - GENERALISED OEDEMA [None]
  - OEDEMA PERIPHERAL [None]
  - PALPITATIONS [None]
  - STOMACH DISCOMFORT [None]
